FAERS Safety Report 8189396-5 (Version None)
Quarter: 2012Q1

REPORT INFORMATION
  Report Type: 
  Country: None (occurrence: None)
  Receive Date: 20120307
  Receipt Date: 20120229
  Transmission Date: 20120608
  Serious: No
  Sender: FDA-Public Use
  Company Number: US-PFIZER INC-2012054180

PATIENT
  Age: 75 Year
  Sex: Male

DRUGS (1)
  1. GLIPIZIDE [Suspect]
     Dosage: UNK

REACTIONS (2)
  - NASAL CONGESTION [None]
  - RHINORRHOEA [None]
